FAERS Safety Report 7138280-4 (Version None)
Quarter: 2010Q4

REPORT INFORMATION
  Report Type: 
  Country: None (occurrence: None)
  Receive Date: 20101118
  Receipt Date: 20101110
  Transmission Date: 20110411
  Serious: Yes (Other)
  Sender: FDA-Public Use
  Company Number: DEP_00410_2010

PATIENT
  Sex: Female
  Weight: 81.1939 kg

DRUGS (5)
  1. GLUMETZA [Suspect]
     Indication: TYPE 2 DIABETES MELLITUS
     Dosage: (1000 MG (2D ORAL)
     Route: 048
     Dates: start: 20091231, end: 20100527
  2. LANTUS [Concomitant]
  3. ASPIRIN [Concomitant]
  4. GLIMEPIRIDE [Concomitant]
  5. LIPITOR [Concomitant]

REACTIONS (1)
  - MYALGIA [None]
